FAERS Safety Report 4739758-0 (Version None)
Quarter: 2005Q3

REPORT INFORMATION
  Report Type: 
  Country: None (occurrence: None)
  Receive Date: 20050810
  Receipt Date: 20050510
  Transmission Date: 20060218
  Serious: No
  Sender: FDA-Public Use
  Company Number: US-GLAXOSMITHKLINE-A0557982A

PATIENT
  Age: 41 Year
  Sex: Female

DRUGS (5)
  1. PAXIL [Suspect]
     Indication: DEPRESSION
     Dosage: 30MG PER DAY
     Route: 048
  2. METHADONE [Concomitant]
  3. AMBIEN [Concomitant]
  4. NEURONTIN [Concomitant]
  5. ADDERALL 30 [Concomitant]

REACTIONS (2)
  - LETHARGY [None]
  - MALAISE [None]
